FAERS Safety Report 4390479-6 (Version None)
Quarter: 2004Q2

REPORT INFORMATION
  Report Type: 
  Country: None (occurrence: None)
  Receive Date: 20040630
  Receipt Date: 20040623
  Transmission Date: 20050107
  Serious: Yes (Other)
  Sender: FDA-Public Use
  Company Number: HQWYE614623JUN04

PATIENT

DRUGS (1)
  1. CHILDREN'S ADVIL [Suspect]
     Route: 048

REACTIONS (1)
  - NECROTISING FASCIITIS [None]
